FAERS Safety Report 10476944 (Version 2)
Quarter: 2014Q3

REPORT INFORMATION
  Report Type: Spontaneous
  Country: US (occurrence: CA)
  Receive Date: 20140926
  Receipt Date: 20140930
  Transmission Date: 20150326
  Serious: Yes (Congenital Anomaly, Other)
  Sender: FDA-Public Use
  Company Number: 2014SP005465

PATIENT

DRUGS (2)
  1. METHOTREXATE [Suspect]
     Active Substance: METHOTREXATE
     Indication: PRODUCT USED FOR UNKNOWN INDICATION
     Route: 064
  2. DICLOFENAC SODIUM W/MISOPROSTOL [Suspect]
     Active Substance: DICLOFENAC SODIUM\MISOPROSTOL
     Indication: PRODUCT USED FOR UNKNOWN INDICATION
     Route: 064

REACTIONS (12)
  - Foetal growth restriction [Unknown]
  - Low set ears [Unknown]
  - Multiple congenital abnormalities [Unknown]
  - Hypertelorism of orbit [Unknown]
  - Micrognathia [Unknown]
  - Clinodactyly [Unknown]
  - Umbilical cord abnormality [Unknown]
  - Foetal exposure during pregnancy [Unknown]
  - Microcephaly [Unknown]
  - Pulmonary malformation [Unknown]
  - Congenital spinal cord anomaly [Unknown]
  - Limb malformation [Unknown]
